FAERS Safety Report 8429456-4 (Version None)
Quarter: 2012Q2

REPORT INFORMATION
  Report Type: 
  Country: None (occurrence: None)
  Receive Date: 20120612
  Receipt Date: 20120606
  Transmission Date: 20120825
  Serious: Yes (Other)
  Sender: FDA-Public Use
  Company Number: US-AMGEN-USASP2011038824

PATIENT
  Age: 59 Year
  Sex: Male

DRUGS (8)
  1. ENBREL [Suspect]
     Indication: PSORIASIS
     Dosage: 50 MG, 2 TIMES/WK
     Route: 058
     Dates: start: 20110613
  2. AMLODIPINE BESYLATE AND BENAZEPRIL HCL [Concomitant]
     Dosage: UNK
  3. FUROSEMIDE [Concomitant]
     Dosage: 20 MG, UNK
  4. METOPROLOL TARTRATE [Concomitant]
     Dosage: 100 MG, UNK
  5. VECTICAL [Concomitant]
     Dosage: 3 MUG, UNK
  6. ENBREL [Suspect]
     Dosage: 50 MG, QWK
     Dates: start: 20110701
  7. CRESTOR [Concomitant]
     Dosage: 10 MG, UNK
  8. VIAGRA [Concomitant]
     Dosage: 50 MG, UNK

REACTIONS (1)
  - ATRIAL FIBRILLATION [None]
